FAERS Safety Report 4564723-6 (Version None)
Quarter: 2005Q1

REPORT INFORMATION
  Report Type: 
  Country: None (occurrence: None)
  Receive Date: 20050128
  Receipt Date: 20050120
  Transmission Date: 20050727
  Serious: Yes (Hospitalization)
  Sender: FDA-Public Use
  Company Number: DE-ABBOTT-05P-062-0287709-00

PATIENT
  Sex: Female
  Weight: 84 kg

DRUGS (3)
  1. REDUCTIL [Suspect]
     Indication: OBESITY
     Dosage: 1-12 CAPSULES DAILY
     Route: 048
     Dates: start: 20041001, end: 20050110
  2. XIMOVAN [Concomitant]
     Indication: INSOMNIA
     Route: 048
     Dates: end: 20041219
  3. DOXEPIN HCL [Concomitant]
     Indication: DEPRESSION
     Dosage: 100-125 MG DAILY
     Route: 048
     Dates: end: 20041219

REACTIONS (4)
  - DRUG ABUSER [None]
  - OVERDOSE [None]
  - PARANOIA [None]
  - PERSECUTORY DELUSION [None]
